FAERS Safety Report 14412287 (Version 1)
Quarter: 2018Q1

REPORT INFORMATION
  Report Type: Spontaneous
  Country: US (occurrence: US)
  Receive Date: 20180117
  Receipt Date: 20180117
  Transmission Date: 20180509
  Serious: No
  Sender: FDA-Public Use
  Company Number: None

PATIENT
  Age: 25 Year
  Sex: Female
  Weight: 48.6 kg

DRUGS (8)
  1. GENERIC ZYRTEC [Concomitant]
     Active Substance: CETIRIZINE HYDROCHLORIDE
  2. GENERIC YAZ [Concomitant]
     Active Substance: DROSPIRENONE\ETHINYL ESTRADIOL
  3. CODLIVER OIL [Concomitant]
  4. LO LOESTRIN FE [Suspect]
     Active Substance: ETHINYL ESTRADIOL\NORETHINDRONE ACETATE
     Indication: CONTRACEPTION
     Dosage: ?          QUANTITY:1 TABLET(S);?
     Route: 048
     Dates: start: 20160301, end: 20171001
  5. NASAL SPRAY [Concomitant]
     Active Substance: UNSPECIFIED INGREDIENT
  6. PROBIOTIC [Concomitant]
     Active Substance: PROBIOTICS NOS
  7. ALBUTEROL. [Concomitant]
     Active Substance: ALBUTEROL
  8. VITAMIN D [Concomitant]
     Active Substance: CHOLECALCIFEROL

REACTIONS (6)
  - Mood swings [None]
  - Irritability [None]
  - Dry skin [None]
  - Hot flush [None]
  - Anger [None]
  - Loss of libido [None]

NARRATIVE: CASE EVENT DATE: 20170301
